FAERS Safety Report 5597254-5 (Version None)
Quarter: 2007Q4

REPORT INFORMATION
  Report Type: 
  Country: None (occurrence: None)
  Receive Date: 20071221
  Receipt Date: 20071011
  Transmission Date: 20080405
  Serious: No
  Sender: FDA-Public Use
  Company Number: SPV1-2007-04508

PATIENT
  Age: 12 Year
  Sex: Male
  Weight: 37.2 kg

DRUGS (5)
  1. VYVANSE [Suspect]
     Indication: DISTURBANCE IN ATTENTION
     Dosage: 30 MG, 1X/DAY:QD, ORAL
     Route: 048
     Dates: start: 20071006, end: 20071010
  2. ZYRTEC [Concomitant]
  3. NOVOLOG [Concomitant]
  4. CULTURELLE (LACTOBACILLUS NOS) [Concomitant]
  5. MILK OF MAGNESIA TAB [Concomitant]

REACTIONS (4)
  - ABDOMINAL PAIN UPPER [None]
  - DIARRHOEA [None]
  - HEADACHE [None]
  - OFF LABEL USE [None]
